FAERS Safety Report 5681014-0 (Version None)
Quarter: 2008Q1

REPORT INFORMATION
  Report Type: 
  Country: None (occurrence: None)
  Receive Date: 20080326
  Receipt Date: 20080314
  Transmission Date: 20080703
  Serious: Yes (Hospitalization, Other)
  Sender: FDA-Public Use
  Company Number: CA-PFIZER INC-2008024947

PATIENT
  Sex: Male

DRUGS (5)
  1. DALACIN [Suspect]
  2. WELLBUTRIN [Concomitant]
     Route: 048
  3. CELEXA [Concomitant]
     Route: 048
  4. ACETYLSALICYLIC ACID SRT [Concomitant]
     Route: 048
  5. AVALIDE [Concomitant]
     Route: 048

REACTIONS (5)
  - DIZZINESS [None]
  - GAIT DISTURBANCE [None]
  - OTOTOXICITY [None]
  - RASH [None]
  - SEPSIS [None]
